FAERS Safety Report 23748671 (Version 3)
Quarter: 2024Q2

REPORT INFORMATION
  Report Type: Report from Study
  Country: NL (occurrence: NL)
  Receive Date: 20240416
  Receipt Date: 20240419
  Transmission Date: 20240716
  Serious: Yes (Hospitalization)
  Sender: FDA-Public Use
  Company Number: NL-AstraZeneca-2023A086370

PATIENT
  Sex: Female
  Weight: 7.5 kg

DRUGS (1)
  1. SYNAGIS [Suspect]
     Active Substance: PALIVIZUMAB
     Indication: Premature baby
     Dosage: 15 MG/KG MONTHLY
     Route: 030
     Dates: start: 20220928

REACTIONS (8)
  - Dyspnoea [Recovered/Resolved]
  - Vomiting [Recovered/Resolved]
  - Pallor [Recovered/Resolved]
  - Lung disorder [Not Recovered/Not Resolved]
  - Unresponsive to stimuli [Recovered/Resolved]
  - Unevaluable event [Not Recovered/Not Resolved]
  - Developmental delay [Not Recovered/Not Resolved]
  - Fatigue [Not Recovered/Not Resolved]
